FAERS Safety Report 14221844 (Version 2)
Quarter: 2017Q4

REPORT INFORMATION
  Report Type: Spontaneous
  Country: TR (occurrence: TR)
  Receive Date: 20171123
  Receipt Date: 20171211
  Transmission Date: 20180321
  Serious: Yes (Life-Threatening, Hospitalization, Other)
  Sender: FDA-Public Use
  Company Number: TR-GLENMARK PHARMACEUTICALS-2017GMK029802

PATIENT
  Age: 74 Year
  Sex: Female

DRUGS (5)
  1. SERTRALINE [Concomitant]
     Active Substance: SERTRALINE HYDROCHLORIDE
     Indication: BIPOLAR DISORDER
     Dosage: 25 MG, QD
     Route: 065
     Dates: start: 2011
  2. LITHIUM. [Suspect]
     Active Substance: LITHIUM
     Indication: BIPOLAR DISORDER
     Dosage: 300 MG, BID (300 MG IN THE MORNING AND 300 MG AT NIGHT)
     Route: 065
     Dates: start: 2010, end: 20160115
  3. MOXIFLOXACIN. [Interacting]
     Active Substance: MOXIFLOXACIN
     Indication: BRONCHIOLITIS
     Dosage: 400 MG, QD
     Route: 065
     Dates: start: 20160114, end: 20160115
  4. HALOPERIDOL. [Concomitant]
     Active Substance: HALOPERIDOL
     Indication: BIPOLAR DISORDER
     Dosage: 10 MG, QD
     Route: 065
     Dates: start: 2010
  5. RISPERIDONE. [Concomitant]
     Active Substance: RISPERIDONE
     Indication: BIPOLAR DISORDER
     Dosage: 2 MG, QD
     Route: 065
     Dates: start: 2010

REACTIONS (8)
  - Myoclonus [Recovered/Resolved]
  - Toxicity to various agents [Recovered/Resolved]
  - Disorientation [Recovered/Resolved]
  - Fatigue [Recovered/Resolved]
  - Dysarthria [Recovered/Resolved]
  - Tremor [Recovered/Resolved]
  - Drug interaction [Recovered/Resolved]
  - Somnolence [Recovered/Resolved]

NARRATIVE: CASE EVENT DATE: 20160115
